FAERS Safety Report 16784091 (Version 1)
Quarter: 2019Q3

REPORT INFORMATION
  Report Type: Report from Study
  Country: None (occurrence: US)
  Receive Date: 20190909
  Receipt Date: 20190909
  Transmission Date: 20191005
  Serious: Yes (Hospitalization, Other)
  Sender: FDA-Public Use
  Company Number: US-ABBVIE-19K-163-2905412-00

PATIENT
  Age: 71 Year
  Sex: Female
  Weight: 83.99 kg

DRUGS (3)
  1. HUMIRA [Suspect]
     Active Substance: ADALIMUMAB
     Indication: ARTHRITIS
  2. HUMIRA [Suspect]
     Active Substance: ADALIMUMAB
     Indication: CROHN^S DISEASE
     Route: 058
     Dates: start: 2010
  3. HUMIRA [Suspect]
     Active Substance: ADALIMUMAB
     Indication: PSORIASIS

REACTIONS (10)
  - Infection [Unknown]
  - Feeling abnormal [Unknown]
  - Sleep disorder [Unknown]
  - Pain [Unknown]
  - Injection site bruising [Unknown]
  - Myocardial infarction [Unknown]
  - Colostomy [Unknown]
  - Road traffic accident [Unknown]
  - Psoriasis [Unknown]
  - Abscess [Unknown]

NARRATIVE: CASE EVENT DATE: 201811
